FAERS Safety Report 21908182 (Version 2)
Quarter: 2023Q2

REPORT INFORMATION
  Report Type: Spontaneous
  Country: FR (occurrence: FR)
  Receive Date: 20230125
  Receipt Date: 20230419
  Transmission Date: 20230722
  Serious: Yes (Other)
  Sender: FDA-Public Use
  Company Number: FR-BESINS-2022-19051

PATIENT
  Age: 31 Year
  Sex: Female

DRUGS (3)
  1. ESTRADIOL [Suspect]
     Active Substance: ESTRADIOL
     Indication: Gender reassignment therapy
     Dosage: UNK
     Route: 065
  2. CHLORMADINONE [Suspect]
     Active Substance: CHLORMADINONE
     Indication: Gender reassignment therapy
     Dosage: UNK
     Route: 065
  3. CHLORMADINONE [Suspect]
     Active Substance: CHLORMADINONE
     Indication: Transgender hormonal therapy

REACTIONS (3)
  - Deep vein thrombosis [Recovered/Resolved]
  - Pulmonary embolism [Recovered/Resolved]
  - Off label use [Unknown]
